FAERS Safety Report 8255024-3 (Version None)
Quarter: 2012Q2

REPORT INFORMATION
  Report Type: 
  Country: None (occurrence: None)
  Receive Date: 20120403
  Receipt Date: 20120327
  Transmission Date: 20120825
  Serious: No
  Sender: FDA-Public Use
  Company Number: US-BAYER-2012-031823

PATIENT

DRUGS (2)
  1. ALEVE (CAPLET) [Suspect]
     Indication: BURSITIS
     Dosage: 1 DF, QD
     Route: 048
     Dates: start: 20120321, end: 20120324
  2. ALEVE (CAPLET) [Suspect]
     Dosage: DAILY DOSE 2 DF
     Route: 048
     Dates: start: 20120325, end: 20120327

REACTIONS (1)
  - BURSITIS [None]
